FAERS Safety Report 8223364-X (Version None)
Quarter: 2012Q1

REPORT INFORMATION
  Report Type: 
  Country: None (occurrence: None)
  Receive Date: 20120321
  Receipt Date: 20120312
  Transmission Date: 20120608
  Serious: Yes (Other)
  Sender: FDA-Public Use
  Company Number: US-CELGENEUS-163-21880-11073301

PATIENT

DRUGS (1)
  1. REVLIMID [Suspect]
     Indication: PLASMACYTOSIS
     Route: 048

REACTIONS (2)
  - NO THERAPEUTIC RESPONSE [None]
  - TUBULOINTERSTITIAL NEPHRITIS [None]
